FAERS Safety Report 21473891 (Version 1)
Quarter: 2022Q4

REPORT INFORMATION
  Report Type: Report from Study
  Country: US (occurrence: US)
  Receive Date: 20221018
  Receipt Date: 20221018
  Transmission Date: 20230112
  Serious: No
  Sender: FDA-Public Use
  Company Number: US-ABBVIE-4162596

PATIENT
  Sex: Female

DRUGS (5)
  1. SKYRIZI [Suspect]
     Active Substance: RISANKIZUMAB-RZAA
     Indication: Psoriasis
     Route: 058
     Dates: start: 20211011
  2. SKYRIZI [Suspect]
     Active Substance: RISANKIZUMAB-RZAA
  3. MODERNA COVID-19 VACCINE [Concomitant]
     Active Substance: ELASOMERAN
     Indication: COVID-19 immunisation
     Dosage: 1ST DOSE 1 IN ONCE
     Route: 030
     Dates: start: 20210402, end: 20210402
  4. MODERNA COVID-19 VACCINE [Concomitant]
     Active Substance: ELASOMERAN
     Indication: COVID-19 immunisation
     Dosage: 2ND DOSE 1 IN ONCE
     Route: 030
     Dates: start: 20210305, end: 20210305
  5. MODERNA COVID-19 VACCINE [Concomitant]
     Active Substance: ELASOMERAN
     Indication: COVID-19 immunisation
     Dosage: 3RD DOSE 1 IN ONCE
     Route: 030
     Dates: start: 20220120, end: 20210120

REACTIONS (5)
  - Migraine [Not Recovered/Not Resolved]
  - Psoriasis [Not Recovered/Not Resolved]
  - Vertigo [Not Recovered/Not Resolved]
  - Thyroid disorder [Not Recovered/Not Resolved]
  - Dizziness [Not Recovered/Not Resolved]
